FAERS Safety Report 6561452-4 (Version None)
Quarter: 2010Q1

REPORT INFORMATION
  Report Type: 
  Country: None (occurrence: None)
  Receive Date: 20100130
  Receipt Date: 20091014
  Transmission Date: 20100710
  Serious: No
  Sender: FDA-Public Use
  Company Number: US-ABBOTT-09P-163-0602738-00

PATIENT
  Sex: Female

DRUGS (4)
  1. HUMIRA [Suspect]
     Indication: RHEUMATOID ARTHRITIS
     Dates: start: 20040101
  2. HUMIRA [Suspect]
     Dates: start: 20091005
  3. LASIX [Concomitant]
     Indication: DRUG USE FOR UNKNOWN INDICATION
     Dosage: DAILY, X 7 DAYS FOLLOWING HUMIRA
  4. ALDACTONE [Concomitant]
     Indication: DRUG USE FOR UNKNOWN INDICATION
     Dosage: ON DAY 1,3,5,7 DURING THE WEEK OF HUMIRA

REACTIONS (5)
  - ABDOMINAL DISTENSION [None]
  - ARTHRALGIA [None]
  - FLUID RETENTION [None]
  - OEDEMA PERIPHERAL [None]
  - SECRETION DISCHARGE [None]
